FAERS Safety Report 14699918 (Version 2)
Quarter: 2018Q2

REPORT INFORMATION
  Report Type: Spontaneous
  Country: CN (occurrence: CN)
  Receive Date: 20180330
  Receipt Date: 20180412
  Transmission Date: 20180711
  Serious: Yes (Hospitalization, Other)
  Sender: FDA-Public Use
  Company Number: CN-MYLANLABS-2018M1020320

PATIENT
  Age: 78 Year
  Sex: Female

DRUGS (4)
  1. MIACALCIC MITE [Concomitant]
     Indication: PRODUCT USED FOR UNKNOWN INDICATION
     Dosage: UNK
     Route: 045
  2. CALCITRIOL. [Concomitant]
     Active Substance: CALCITRIOL
     Indication: PRODUCT USED FOR UNKNOWN INDICATION
  3. EXFORGE [Suspect]
     Active Substance: AMLODIPINE BESYLATE\VALSARTAN
     Indication: HYPERTENSION
     Dosage: 1 DF, QD
     Route: 048
     Dates: start: 20171018
  4. CALCITONIN SALMON. [Suspect]
     Active Substance: CALCITONIN SALMON
     Indication: OSTEOPOROSIS
     Dosage: 1 SPRAY PER DAY
     Route: 045
     Dates: start: 20171221, end: 20180316

REACTIONS (11)
  - Dyspnoea [Recovering/Resolving]
  - Back pain [Unknown]
  - Arthralgia [Unknown]
  - Movement disorder [Unknown]
  - Cough [Unknown]
  - Spinal compression fracture [Unknown]
  - Insomnia [Unknown]
  - Palpitations [Recovering/Resolving]
  - Musculoskeletal pain [Unknown]
  - Asthenia [Recovering/Resolving]
  - Decreased appetite [Unknown]
